FAERS Safety Report 7215385-0 (Version None)
Quarter: 2011Q1

REPORT INFORMATION
  Report Type: 
  Country: None (occurrence: None)
  Receive Date: 20110104
  Receipt Date: 20110104
  Transmission Date: 20110831
  Serious: Yes (Hospitalization)
  Sender: FDA-Public Use
  Company Number: None

PATIENT
  Age: 66 Year
  Sex: Male
  Weight: 111 kg

DRUGS (1)
  1. GOSERELIN ACETATE [Suspect]
     Indication: PROSTATE CANCER
     Dosage: 10.8 MG OTHER SQ
     Route: 058
     Dates: start: 20100616, end: 20101230

REACTIONS (3)
  - ANGIOEDEMA [None]
  - HYPERSENSITIVITY [None]
  - RASH [None]
